FAERS Safety Report 14988575 (Version 1)
Quarter: 2018Q2

REPORT INFORMATION
  Report Type: Spontaneous
  Country: DE (occurrence: DE)
  Receive Date: 20180608
  Receipt Date: 20180608
  Transmission Date: 20180711
  Serious: Yes (Other)
  Sender: FDA-Public Use
  Company Number: DE-LEO PHARMA-309290

PATIENT
  Age: 44 Year
  Sex: Male
  Weight: 78 kg

DRUGS (3)
  1. DOXEPIN [Concomitant]
     Active Substance: DOXEPIN
     Indication: PRODUCT USED FOR UNKNOWN INDICATION
     Dosage: 10MG
     Dates: start: 20180505
  2. PROTOPIC [Suspect]
     Active Substance: TACROLIMUS
     Indication: ECZEMA
     Route: 061
     Dates: start: 20180504
  3. ALCOHOL. [Concomitant]
     Active Substance: ALCOHOL
     Indication: PRODUCT USED FOR UNKNOWN INDICATION

REACTIONS (9)
  - Anorectal discomfort [Unknown]
  - Insomnia [Unknown]
  - Suicidal ideation [Unknown]
  - Anxiety [Unknown]
  - Anal pruritus [Unknown]
  - Restlessness [Unknown]
  - Urethral pain [Unknown]
  - Product use in unapproved indication [Unknown]
  - Penis disorder [Unknown]

NARRATIVE: CASE EVENT DATE: 2018
